FAERS Safety Report 4817043-6 (Version None)
Quarter: 2005Q4

REPORT INFORMATION
  Report Type: 
  Country: None (occurrence: None)
  Receive Date: 20051101
  Receipt Date: 20051021
  Transmission Date: 20060501
  Serious: Yes (Other)
  Sender: FDA-Public Use
  Company Number: FR-GLAXOSMITHKLINE-B0398641A

PATIENT
  Sex: Female

DRUGS (4)
  1. SERETIDE [Suspect]
     Indication: ASTHMA
     Route: 055
     Dates: start: 20020101
  2. CREAM [Concomitant]
     Route: 061
  3. SOLU-MEDROL [Concomitant]
     Indication: ASTHMA
     Route: 065
     Dates: end: 20020101
  4. SINGULAIR [Concomitant]
     Indication: ASTHMA
     Route: 065
     Dates: end: 20020101

REACTIONS (2)
  - CAPILLARY DISORDER [None]
  - SKIN ATROPHY [None]
